FAERS Safety Report 7038997-6 (Version None)
Quarter: 2010Q4

REPORT INFORMATION
  Report Type: 
  Country: None (occurrence: None)
  Receive Date: 20101012
  Receipt Date: 20100928
  Transmission Date: 20110411
  Serious: Yes (Hospitalization)
  Sender: FDA-Public Use
  Company Number: GB-RANBAXY-2010RR-36445

PATIENT
  Age: 79 Year
  Sex: Male

DRUGS (16)
  1. ATORVASTATIN [Suspect]
     Indication: HYPERCHOLESTEROLAEMIA
     Dosage: 20 MG, QD
     Route: 048
     Dates: end: 20100712
  2. BENDROFLUMETHIAZIDE [Suspect]
     Indication: POLYURIA
     Dosage: 2.5 MG, QD
     Route: 048
  3. FUROSEMIDE [Suspect]
     Indication: FLUID OVERLOAD
     Dosage: 40 MG, QD
     Route: 048
  4. METFORMIN [Suspect]
     Indication: DIABETES MELLITUS
     Dosage: 500 MG, TID
     Route: 048
  5. OXYCONTIN [Suspect]
     Indication: PHANTOM PAIN
     Dosage: 40 MG, BID
     Route: 048
  6. OXYCODONE HCL [Suspect]
     Indication: BREAKTHROUGH PAIN
     Dosage: 10 MG, QID
     Route: 048
     Dates: end: 20100712
  7. RAMIPRIL [Suspect]
     Indication: HYPERTENSION
     Dosage: 7.5 MG, QD
     Route: 048
  8. RAMIPRIL [Suspect]
     Indication: LEFT VENTRICULAR FAILURE
  9. ASPIRIN [Concomitant]
     Dosage: 75 MG, QD
  10. BENDROFLUMETHIAZIDE [Concomitant]
  11. DOXYCYCLINE [Concomitant]
     Dosage: 100 MG, UNK
  12. FUROSEMIDE [Concomitant]
  13. METFORMIN [Concomitant]
  14. PARACETAMOL [Concomitant]
     Dosage: 500 MG, UNK
  15. PREGABALIN [Concomitant]
     Dosage: 75 MG, UNK
  16. RAMIPRIL [Concomitant]

REACTIONS (10)
  - ACCIDENTAL OVERDOSE [None]
  - BLOOD CREATINE PHOSPHOKINASE INCREASED [None]
  - CONFUSIONAL STATE [None]
  - DEHYDRATION [None]
  - ERYTHEMA [None]
  - HYPOPHAGIA [None]
  - MIOSIS [None]
  - NARCOTIC INTOXICATION [None]
  - RENAL FAILURE ACUTE [None]
  - SOMNOLENCE [None]
